FAERS Safety Report 11220239 (Version 2)
Quarter: 2015Q3

REPORT INFORMATION
  Report Type: Report from Study
  Country: US (occurrence: US)
  Receive Date: 20150625
  Receipt Date: 20150805
  Transmission Date: 20151125
  Serious: Yes (Death, Other)
  Sender: FDA-Public Use
  Company Number: US-EXELIXIS-CABO-15005326

PATIENT
  Age: 56 Year
  Sex: Male

DRUGS (2)
  1. CABOZANTINIB [Suspect]
     Active Substance: CABOZANTINIB
     Dosage: 40 MG, QD
     Route: 048
     Dates: start: 20150529, end: 201507
  2. CABOZANTINIB [Suspect]
     Active Substance: CABOZANTINIB
     Indication: LUNG NEOPLASM MALIGNANT
     Dosage: 60 MG, QD
     Route: 048
     Dates: start: 20150331, end: 20150528

REACTIONS (10)
  - Diarrhoea [Unknown]
  - Fatigue [Unknown]
  - Blood bilirubin increased [Unknown]
  - Off label use [Unknown]
  - Liver function test abnormal [Unknown]
  - Anal ulcer [Unknown]
  - Acne [Unknown]
  - Dizziness [Unknown]
  - Death [Fatal]
  - Pyrexia [Unknown]

NARRATIVE: CASE EVENT DATE: 20150729
